FAERS Safety Report 6331431-0 (Version None)
Quarter: 2009Q3

REPORT INFORMATION
  Report Type: 
  Country: None (occurrence: None)
  Receive Date: 20090827
  Receipt Date: 20090821
  Transmission Date: 20100115
  Serious: Yes (Hospitalization, Other)
  Sender: FDA-Public Use
  Company Number: US-ABBOTT-08P-163-0453861-00

PATIENT
  Sex: Female
  Weight: 56.75 kg

DRUGS (11)
  1. HUMIRA [Suspect]
     Indication: CROHN'S DISEASE
     Route: 058
     Dates: start: 20080201, end: 20080201
  2. HUMIRA [Suspect]
     Route: 058
  3. HUMIRA [Suspect]
     Route: 058
  4. PREVACID [Concomitant]
     Indication: DYSPEPSIA
     Dosage: CONSUMER ONLY WANTED TO PROVIDE NAMES, NOTHING ELSE
     Route: 048
  5. CHOLESTYRAMINE [Concomitant]
     Indication: PROPHYLAXIS AGAINST DIARRHOEA
     Route: 048
  6. LISINOPRIL [Concomitant]
     Indication: HYPERTENSION
     Route: 048
  7. LASIX [Concomitant]
     Indication: HYPERTENSION
     Route: 048
  8. NEURONTIN [Concomitant]
     Indication: NEUROPATHY PERIPHERAL
     Route: 048
  9. ALLEGRA [Concomitant]
     Indication: SEASONAL ALLERGY
     Route: 048
  10. IRON [Concomitant]
     Indication: ANAEMIA
     Route: 048
  11. VITAMIN B-12 [Concomitant]
     Indication: NEUROPATHY PERIPHERAL
     Route: 050

REACTIONS (4)
  - HIP ARTHROPLASTY [None]
  - INCORRECT DOSE ADMINISTERED [None]
  - INJECTION SITE EXTRAVASATION [None]
  - INJECTION SITE PAIN [None]
